FAERS Safety Report 6425050-5 (Version None)
Quarter: 2009Q4

REPORT INFORMATION
  Report Type: 
  Country: None (occurrence: None)
  Receive Date: 20091103
  Receipt Date: 20091102
  Transmission Date: 20100525
  Serious: No
  Sender: FDA-Public Use
  Company Number: US-ROXANE LABORATORIES, INC.-2009-RO-01114RO

PATIENT
  Sex: Male

DRUGS (1)
  1. HYDROMORPHONE HCL [Suspect]
     Indication: NEOPLASM MALIGNANT
     Dosage: 24 MG
     Dates: end: 20091101

REACTIONS (5)
  - NAUSEA [None]
  - PRODUCT MEASURED POTENCY ISSUE [None]
  - PRODUCT SIZE ISSUE [None]
  - PRODUCT TASTE ABNORMAL [None]
  - SOMNOLENCE [None]
